FAERS Safety Report 5158141-X (Version None)
Quarter: 2006Q4

REPORT INFORMATION
  Report Type: 
  Country: None (occurrence: None)
  Receive Date: 20061120
  Receipt Date: 20061120
  Transmission Date: 20070319
  Serious: Yes (Other)
  Sender: FDA-Public Use
  Company Number: None

PATIENT
  Sex: Female
  Weight: 61.2356 kg

DRUGS (1)
  1. TRASTUZMAB -HERCEPTIN-GENENTECH [Suspect]
     Indication: BREAST CANCER
     Dosage: 380 MG EVERY 3 WKS IV DRIP
     Route: 041
     Dates: start: 20060320, end: 20060909

REACTIONS (4)
  - ARTHRALGIA [None]
  - MYALGIA [None]
  - SERUM SICKNESS [None]
  - SYSTEMIC LUPUS ERYTHEMATOSUS [None]
